FAERS Safety Report 11156539 (Version 2)
Quarter: 2015Q2

REPORT INFORMATION
  Report Type: Spontaneous
  Country: US (occurrence: US)
  Receive Date: 20150602
  Receipt Date: 20150618
  Transmission Date: 20150821
  Serious: Yes (Hospitalization, Other)
  Sender: FDA-Public Use
  Company Number: US-009507513-1505USA015373

PATIENT
  Age: 94 Year
  Sex: Female

DRUGS (2)
  1. BELSOMRA [Suspect]
     Active Substance: SUVOREXANT
     Dosage: 5 MG, QD
     Route: 048
     Dates: start: 20150508, end: 20150513
  2. BELSOMRA [Suspect]
     Active Substance: SUVOREXANT
     Indication: INSOMNIA
     Dosage: 10 MG, QD
     Route: 048
     Dates: start: 20150506, end: 20150507

REACTIONS (7)
  - Wrong technique in drug usage process [Unknown]
  - Somnolence [Unknown]
  - Bradycardia [Unknown]
  - Conjunctivitis [Unknown]
  - Mental status changes [Unknown]
  - Cerebrovascular accident [Unknown]
  - Hypertension [Unknown]

NARRATIVE: CASE EVENT DATE: 201505
